FAERS Safety Report 6039943-4 (Version None)
Quarter: 2009Q1

REPORT INFORMATION
  Report Type: 
  Country: None (occurrence: None)
  Receive Date: 20090116
  Receipt Date: 20071102
  Transmission Date: 20090719
  Serious: Yes (Disabling, Other)
  Sender: FDA-Public Use
  Company Number: US-BRISTOL-MYERS SQUIBB COMPANY-13938840

PATIENT
  Age: 61 Year
  Sex: Female

DRUGS (3)
  1. ABILIFY [Suspect]
     Indication: BIPOLAR DISORDER
     Route: 048
     Dates: start: 20060223, end: 20070517
  2. PROZAC [Concomitant]
  3. KLONOPIN [Concomitant]
     Dosage: TWICE DAILY
     Dates: start: 20070419

REACTIONS (1)
  - TARDIVE DYSKINESIA [None]
